FAERS Safety Report 21531329 (Version 1)
Quarter: 2022Q4

REPORT INFORMATION
  Report Type: Spontaneous
  Country: US (occurrence: None)
  Receive Date: 20221028
  Receipt Date: 20221028
  Transmission Date: 20230112
  Serious: Yes (Death, Hospitalization)
  Sender: FDA-Public Use
  Company Number: None

PATIENT
  Age: 87 Year
  Sex: Male
  Weight: 91.81 kg

DRUGS (14)
  1. BRAFTOVI [Suspect]
     Active Substance: ENCORAFENIB
     Indication: Malignant melanoma
     Dosage: FREQUENCY : DAILY;?
     Route: 048
  2. MEKTOVI [Suspect]
     Active Substance: BINIMETINIB
     Indication: Malignant melanoma
     Dosage: FREQUENCY : EVERY 12 HOURS;?
     Route: 048
  3. ACYCLOVIR [Concomitant]
     Active Substance: ACYCLOVIR
  4. BREZTRI [Concomitant]
     Active Substance: BUDESONIDE\FORMOTEROL\GLYCOPYRROLATE
  5. DORZOLAMIDE [Concomitant]
     Active Substance: DORZOLAMIDE
  6. EYLEA [Concomitant]
     Active Substance: AFLIBERCEPT
  7. LATANOPROST [Concomitant]
     Active Substance: LATANOPROST
  8. LEVOTHYROXINE [Concomitant]
     Active Substance: LEVOTHYROXINE
  9. MEKINIST [Concomitant]
     Active Substance: TRAMETINIB DIMETHYL SULFOXIDE
  10. VITAMINS [Concomitant]
     Active Substance: VITAMINS
  11. OLMESARTAN [Concomitant]
     Active Substance: OLMESARTAN
  12. RHOPRESSA [Concomitant]
     Active Substance: NETARSUDIL MESYLATE
  13. VITAMIN D [Concomitant]
     Active Substance: VITAMIN D NOS
  14. ZOFRAN [Concomitant]
     Active Substance: ONDANSETRON HYDROCHLORIDE

REACTIONS (1)
  - Intracranial tumour haemorrhage [None]

NARRATIVE: CASE EVENT DATE: 20221016
